FAERS Safety Report 4282364-5 (Version None)
Quarter: 2004Q1

REPORT INFORMATION
  Report Type: 
  Country: None (occurrence: None)
  Receive Date: 20040114
  Receipt Date: 20031125
  Transmission Date: 20041129
  Serious: Yes (Other)
  Sender: FDA-Public Use
  Company Number: BIVUS030111

PATIENT
  Age: 50 Year
  Sex: Male

DRUGS (4)
  1. ANGIOMAX [Suspect]
     Indication: ANGIOGRAM
     Dosage: SEE IMAGE
     Dates: start: 20031112, end: 20031112
  2. ANGIOMAX [Suspect]
     Indication: ANTICOAGULANT THERAPY
     Dosage: SEE IMAGE
     Dates: start: 20031112, end: 20031112
  3. ANGIOMAX [Suspect]
     Indication: ANGIOGRAM
     Dosage: SEE IMAGE
     Dates: start: 20031112, end: 20031112
  4. ANGIOMAX [Suspect]
     Indication: ANTICOAGULANT THERAPY
     Dosage: SEE IMAGE
     Dates: start: 20031112, end: 20031112

REACTIONS (2)
  - COAGULATION TIME ABNORMAL [None]
  - CORONARY ARTERY THROMBOSIS [None]
